FAERS Safety Report 6115632-2 (Version None)
Quarter: 2009Q1

REPORT INFORMATION
  Report Type: 
  Country: None (occurrence: None)
  Receive Date: 20090313
  Receipt Date: 20090302
  Transmission Date: 20090719
  Serious: Yes (Death, Life-Threatening)
  Sender: FDA-Public Use
  Company Number: ZA-JNJFOC-20090300830

PATIENT
  Age: 74 Year
  Sex: Female
  Weight: 65 kg

DRUGS (3)
  1. REVELLEX [Suspect]
     Route: 042
  2. REVELLEX [Suspect]
     Route: 042
  3. REVELLEX [Suspect]
     Indication: RHEUMATOID ARTHRITIS
     Route: 042

REACTIONS (4)
  - DEATH [None]
  - DEHYDRATION [None]
  - DIARRHOEA [None]
  - HYPOGLYCAEMIA [None]
